FAERS Safety Report 7707665-7 (Version None)
Quarter: 2011Q3

REPORT INFORMATION
  Report Type: 
  Country: None (occurrence: None)
  Receive Date: 20110824
  Receipt Date: 20110817
  Transmission Date: 20111222
  Serious: Yes (Hospitalization)
  Sender: FDA-Public Use
  Company Number: PHHY2011PL73938

PATIENT
  Sex: Female
  Weight: 62 kg

DRUGS (8)
  1. BONIVA [Concomitant]
  2. CLARITHROMYCIN [Suspect]
     Indication: PNEUMONITIS
     Dosage: 500 MG, BID
     Route: 048
     Dates: start: 20110717, end: 20110721
  3. HYDROCHLOROTHIAZIDE [Concomitant]
  4. ACETYLCYSTEINE [Concomitant]
  5. SEREVENT [Concomitant]
  6. ENARENAL [Concomitant]
  7. THEOVENT [Concomitant]
  8. CEFUROXIME [Suspect]
     Indication: PNEUMONITIS
     Dosage: 500 MG, BID
     Route: 048
     Dates: start: 20110717, end: 20110721

REACTIONS (2)
  - DEHYDRATION [None]
  - DIARRHOEA [None]
